FAERS Safety Report 16843993 (Version 1)
Quarter: 2019Q3

REPORT INFORMATION
  Report Type: Spontaneous
  Country: CA (occurrence: CA)
  Receive Date: 20190924
  Receipt Date: 20190924
  Transmission Date: 20191005
  Serious: Yes (Disabling)
  Sender: FDA-Public Use
  Company Number: CA-TEVA-2019-CA-1113106

PATIENT
  Age: 53 Year
  Sex: Male
  Weight: 68 kg

DRUGS (4)
  1. COPAXONE [Concomitant]
     Active Substance: GLATIRAMER ACETATE
  2. VENLAFAXINE HYDROCHLORIDE. [Suspect]
     Active Substance: VENLAFAXINE HYDROCHLORIDE
     Indication: DEPRESSION
     Route: 048
  3. CANDESARTAN CILEXETIL. [Concomitant]
     Active Substance: CANDESARTAN CILEXETIL
  4. TAMSULOSIN [Concomitant]
     Active Substance: TAMSULOSIN

REACTIONS (4)
  - Product substitution issue [Recovered/Resolved]
  - Tearfulness [Recovered/Resolved]
  - Mood swings [Recovered/Resolved]
  - Paradoxical drug reaction [Recovered/Resolved]
